FAERS Safety Report 16621777 (Version 2)
Quarter: 2019Q3

REPORT INFORMATION
  Report Type: Spontaneous
  Country: ES (occurrence: ES)
  Receive Date: 20190723
  Receipt Date: 20190819
  Transmission Date: 20191004
  Serious: Yes (Hospitalization, Other)
  Sender: FDA-Public Use
  Company Number: ES-GILEAD-2019-0418286

PATIENT
  Age: 29 Year
  Sex: Female
  Weight: 52 kg

DRUGS (19)
  1. CALCIO GLUCONATO [Concomitant]
     Active Substance: CALCIUM GLUCONATE
  2. FLUCONAZOL [Concomitant]
     Active Substance: FLUCONAZOLE
  3. GLUCOSA [GLUCOSE] [Concomitant]
  4. FENTANILO [FENTANYL] [Concomitant]
  5. METOCLOPRAMIDA [METOCLOPRAMIDE] [Concomitant]
     Active Substance: METOCLOPRAMIDE
  6. MEROPENEM. [Concomitant]
     Active Substance: MEROPENEM
  7. ACICLOVIR [Concomitant]
     Active Substance: ACYCLOVIR
  8. ALLOPURINOL. [Concomitant]
     Active Substance: ALLOPURINOL
  9. PARACETAMOL [Concomitant]
     Active Substance: ACETAMINOPHEN
  10. LORAZEPAM. [Concomitant]
     Active Substance: LORAZEPAM
  11. YESCARTA [Suspect]
     Active Substance: AXICABTAGENE CILOLEUCEL
     Indication: DIFFUSE LARGE B-CELL LYMPHOMA
     Dosage: 68 ML, ONCE
     Route: 042
     Dates: start: 20190702, end: 20190702
  12. YESCARTA [Suspect]
     Active Substance: AXICABTAGENE CILOLEUCEL
     Indication: B-CELL LYMPHOMA
  13. FOLIC ACID. [Concomitant]
     Active Substance: FOLIC ACID
  14. MORFINA [MORPHINE] [Concomitant]
  15. COTRIMOXAZOL [Concomitant]
     Active Substance: SULFAMETHOXAZOLE\TRIMETHOPRIM
  16. OMEPRAZOL [OMEPRAZOLE] [Concomitant]
     Active Substance: OMEPRAZOLE
  17. MAGNESIO SOLFATO [Concomitant]
  18. SODIO CLORURO [Concomitant]
     Active Substance: SODIUM CHLORIDE
  19. AMIKACINA [AMIKACIN] [Concomitant]

REACTIONS (4)
  - Inappropriate antidiuretic hormone secretion [Recovered/Resolved]
  - Neurotoxicity [Recovered/Resolved]
  - Behaviour disorder [Recovered/Resolved]
  - Cytokine release syndrome [Recovered/Resolved]

NARRATIVE: CASE EVENT DATE: 20190702
